FAERS Safety Report 14901356 (Version 4)
Quarter: 2018Q3

REPORT INFORMATION
  Report Type: Report from Study
  Country: US (occurrence: US)
  Receive Date: 20180516
  Receipt Date: 20180802
  Transmission Date: 20181010
  Serious: Yes (Other)
  Sender: FDA-Public Use
  Company Number: US-BAYER-2018-076348

PATIENT
  Age: 68 Year
  Sex: Male

DRUGS (3)
  1. NEXAVAR [Suspect]
     Active Substance: SORAFENIB
     Indication: HEPATOCELLULAR CARCINOMA
     Dosage: 200 MG, BID
     Route: 048
     Dates: start: 20180615
  2. NEXAVAR [Suspect]
     Active Substance: SORAFENIB
     Indication: HEPATOCELLULAR CARCINOMA
     Dosage: 200 MG, BID
     Route: 048
     Dates: start: 20180608, end: 20180614
  3. NEXAVAR [Suspect]
     Active Substance: SORAFENIB
     Indication: HEPATOCELLULAR CARCINOMA
     Dosage: 200 MG, BID
     Route: 048
     Dates: start: 20180414, end: 2018

REACTIONS (19)
  - Dysphonia [Not Recovered/Not Resolved]
  - Loss of personal independence in daily activities [None]
  - Off label use [None]
  - Product availability issue [None]
  - Fatigue [Not Recovered/Not Resolved]
  - Weight decreased [Recovering/Resolving]
  - Chills [None]
  - Diarrhoea [Not Recovered/Not Resolved]
  - Vocal cord paralysis [Not Recovered/Not Resolved]
  - Drug dose omission [None]
  - Hyperbilirubinaemia [Recovering/Resolving]
  - Exercise tolerance decreased [Not Recovered/Not Resolved]
  - Memory impairment [Recovering/Resolving]
  - Drooling [Recovering/Resolving]
  - Speech disorder [Recovering/Resolving]
  - Asthenia [Recovering/Resolving]
  - Dehydration [Recovering/Resolving]
  - Depression [Not Recovered/Not Resolved]
  - Fatigue [Not Recovered/Not Resolved]

NARRATIVE: CASE EVENT DATE: 2018
